FAERS Safety Report 24966390 (Version 3)
Quarter: 2025Q3

REPORT INFORMATION
  Report Type: Report from Study
  Country: US (occurrence: US)
  Receive Date: 20250213
  Receipt Date: 20250803
  Transmission Date: 20251020
  Serious: Yes (Other)
  Sender: ALEXION PHARMACEUTICALS
  Company Number: US-AstraZeneca-CH-00802068A

PATIENT
  Sex: Female

DRUGS (1)
  1. TICAGRELOR [Suspect]
     Active Substance: TICAGRELOR
     Route: 065

REACTIONS (9)
  - Cardiac failure congestive [Unknown]
  - Neuropathy peripheral [Unknown]
  - Hypoaesthesia [Unknown]
  - Dyspnoea [Unknown]
  - Cough [Unknown]
  - Back disorder [Unknown]
  - Productive cough [Unknown]
  - Product dose omission in error [Unknown]
  - Dyspnoea [Unknown]
